FAERS Safety Report 7605177-2 (Version None)
Quarter: 2011Q3

REPORT INFORMATION
  Report Type: 
  Country: None (occurrence: None)
  Receive Date: 20110705
  Receipt Date: 20110617
  Transmission Date: 20111222
  Serious: Yes (Other)
  Sender: FDA-Public Use
  Company Number: 962193

PATIENT
  Sex: Male
  Weight: 10.4 kg

DRUGS (7)
  1. CEFOTAXIME [Suspect]
     Indication: ENDOCARDITIS
     Dosage: 500 MG INTRAVENOUS
     Route: 042
     Dates: start: 20110502, end: 20110526
  2. FUROSEMIDE [Suspect]
     Indication: CARDIAC DISORDER
     Dosage: 5 MG, ORAL
     Route: 048
     Dates: start: 20100305, end: 20110528
  3. VANCOMYCIN HYCHLORIDE [Suspect]
     Indication: ENDOCARDITIS
     Dosage: 550 MG, INTRAVENOUS
     Route: 042
     Dates: start: 20110502, end: 20110526
  4. ASPIRIN [Concomitant]
  5. NYSTATIN [Concomitant]
  6. RIFAMPICIN [Suspect]
     Indication: ENDOCARDITIS
     Dosage: 68 MG, ORAL
     Route: 048
     Dates: start: 20110502, end: 20110526
  7. SPIRONOLACTONE [Concomitant]

REACTIONS (3)
  - RASH ERYTHEMATOUS [None]
  - DRUG INTERACTION [None]
  - PAPULE [None]
